FAERS Safety Report 7118952-8 (Version None)
Quarter: 2010Q4

REPORT INFORMATION
  Report Type: 
  Country: None (occurrence: None)
  Receive Date: 20101123
  Receipt Date: 20101115
  Transmission Date: 20110411
  Serious: Yes (Death)
  Sender: FDA-Public Use
  Company Number: ES-ROCHE-741762

PATIENT
  Age: 66 Year
  Sex: Female

DRUGS (2)
  1. XELODA [Suspect]
     Route: 048
     Dates: start: 20080812, end: 20100421
  2. AVASTIN [Suspect]
     Route: 042
     Dates: start: 20080812, end: 20100421

REACTIONS (1)
  - INTESTINAL PERFORATION [None]
